FAERS Safety Report 4310296-2 (Version None)
Quarter: 2004Q1

REPORT INFORMATION
  Report Type: 
  Country: None (occurrence: None)
  Receive Date: 20040301
  Receipt Date: 20040301
  Transmission Date: 20041129
  Serious: Yes (Hospitalization)
  Sender: FDA-Public Use
  Company Number: None

PATIENT
  Age: 39 Year
  Sex: Female

DRUGS (1)
  1. REMICADE [Suspect]
     Indication: CROHN'S DISEASE

REACTIONS (7)
  - ARTHRALGIA [None]
  - BONE PAIN [None]
  - MUSCULOSKELETAL STIFFNESS [None]
  - PETECHIAE [None]
  - PHARYNGOLARYNGEAL PAIN [None]
  - PYREXIA [None]
  - SERUM SICKNESS [None]
